FAERS Safety Report 24743085 (Version 3)
Quarter: 2025Q1

REPORT INFORMATION
  Report Type: Spontaneous
  Country: US (occurrence: US)
  Receive Date: 20241217
  Receipt Date: 20250318
  Transmission Date: 20250409
  Serious: Yes (Hospitalization, Other)
  Sender: BIOVITRUM
  Company Number: US-BIOVITRUM-2024-US-016082

PATIENT
  Age: 74 Year
  Sex: Female

DRUGS (2)
  1. VONJO [Suspect]
     Active Substance: PACRITINIB
     Indication: Myelofibrosis
     Route: 048
     Dates: start: 20241122
  2. VONJO [Suspect]
     Active Substance: PACRITINIB
     Dates: start: 20241122

REACTIONS (4)
  - Renal impairment [Unknown]
  - Cough [Unknown]
  - Vision blurred [Unknown]
  - Pinguecula [Unknown]
